FAERS Safety Report 5255781-4 (Version None)
Quarter: 2007Q1

REPORT INFORMATION
  Report Type: 
  Country: None (occurrence: None)
  Receive Date: 20070228
  Receipt Date: 20070214
  Transmission Date: 20070707
  Serious: Yes (Other)
  Sender: FDA-Public Use
  Company Number: 230003M06DNK

PATIENT
  Age: 42 Year
  Weight: 70 kg

DRUGS (5)
  1. REBIF [Suspect]
     Dosage: 22 MCG, 3 IN 1 WEEKS
     Dates: start: 19990401
  2. BENDROFLUMETHIAZIDE [Concomitant]
  3. TOLTERODINE TARTRATE [Concomitant]
  4. POTASSIUM CHLORIDE [Concomitant]
  5. PHENOXYMETHYLPENICILLIN [Concomitant]

REACTIONS (4)
  - ARTHRALGIA [None]
  - NODULE [None]
  - RASH ERYTHEMATOUS [None]
  - TENDERNESS [None]
